FAERS Safety Report 16698591 (Version 3)
Quarter: 2019Q4

REPORT INFORMATION
  Report Type: Spontaneous
  Country: IT (occurrence: IT)
  Receive Date: 20190813
  Receipt Date: 20191008
  Transmission Date: 20200122
  Serious: Yes (Hospitalization)
  Sender: FDA-Public Use
  Company Number: IT-PFIZER INC-2019346677

PATIENT
  Age: 58 Year
  Sex: Male
  Weight: 105 kg

DRUGS (1)
  1. METHOTREXATE SODIUM. [Suspect]
     Active Substance: METHOTREXATE SODIUM
     Indication: RHEUMATOID ARTHRITIS
     Dosage: 7.5 MG, DAILY
     Route: 048
     Dates: start: 20190710, end: 20190720

REACTIONS (6)
  - Mucosal inflammation [Recovering/Resolving]
  - Accidental overdose [Unknown]
  - Hyperthermia [Recovering/Resolving]
  - Hypertransaminasaemia [Recovering/Resolving]
  - Aphthous ulcer [Recovering/Resolving]
  - Leukopenia [Recovering/Resolving]

NARRATIVE: CASE EVENT DATE: 20190710
